FAERS Safety Report 19082087 (Version 1)
Quarter: 2021Q1

REPORT INFORMATION
  Report Type: Spontaneous
  Country: US (occurrence: US)
  Receive Date: 20210331
  Receipt Date: 20210331
  Transmission Date: 20210420
  Serious: Yes (Life-Threatening, Hospitalization)
  Sender: FDA-Public Use
  Company Number: None

PATIENT
  Age: 81 Year
  Sex: Male
  Weight: 77.85 kg

DRUGS (19)
  1. FOLIC ACID. [Concomitant]
     Active Substance: FOLIC ACID
  2. MELATONIN [Concomitant]
     Active Substance: MELATONIN
  3. FLUTICASONE PROPIONATE AND SALMETEROL DISKUS [Suspect]
     Active Substance: FLUTICASONE PROPIONATE\SALMETEROL XINAFOATE
     Indication: ASTHMA
     Dosage: ?          QUANTITY:60 INHALATION(S);?
     Route: 055
     Dates: start: 20210319, end: 20210319
  4. VITAMIN D [Concomitant]
     Active Substance: VITAMIN D NOS
  5. LUTEIN [Concomitant]
     Active Substance: LUTEIN
  6. PLANT STEROLS [Concomitant]
  7. ALBUTEROL INHALER [Concomitant]
     Active Substance: ALBUTEROL
  8. PREDNISONE. [Concomitant]
     Active Substance: PREDNISONE
  9. MELOXICAM. [Concomitant]
     Active Substance: MELOXICAM
  10. B?12 INJECTIONS [Concomitant]
  11. VITAMIN B6 [Concomitant]
     Active Substance: PYRIDOXINE HYDROCHLORIDE
  12. CURCUMIN [Concomitant]
     Active Substance: CURCUMIN
  13. MIRALAX [Concomitant]
     Active Substance: POLYETHYLENE GLYCOL 3350
  14. ROSUVASTATIN. [Concomitant]
     Active Substance: ROSUVASTATIN
  15. FISH OIL [Concomitant]
     Active Substance: FISH OIL
  16. CALCIUM [Concomitant]
     Active Substance: CALCIUM
  17. OMEPRAZOLE. [Concomitant]
     Active Substance: OMEPRAZOLE
  18. DILTIAZEM. [Concomitant]
     Active Substance: DILTIAZEM
  19. LORAZEPAM. [Concomitant]
     Active Substance: LORAZEPAM

REACTIONS (5)
  - Oxygen saturation decreased [None]
  - Mucosal hypertrophy [None]
  - Dermatitis herpetiformis [None]
  - Drug ineffective [None]
  - Asthma [None]

NARRATIVE: CASE EVENT DATE: 20210319
